FAERS Safety Report 5001446-3 (Version None)
Quarter: 2006Q2

REPORT INFORMATION
  Report Type: 
  Country: None (occurrence: None)
  Receive Date: 20060512
  Receipt Date: 20060307
  Transmission Date: 20061013
  Serious: Yes (Hospitalization, Disabling)
  Sender: FDA-Public Use
  Company Number: US-MERCK-0603USA01337

PATIENT
  Age: 49 Year
  Sex: Female
  Weight: 78 kg

DRUGS (3)
  1. VIOXX [Suspect]
     Indication: NECK PAIN
     Route: 048
     Dates: start: 20021201, end: 20030301
  2. LIPITOR [Concomitant]
     Route: 065
     Dates: start: 20021201, end: 20030301
  3. GLUCOPHAGE [Concomitant]
     Route: 065
     Dates: start: 20021201, end: 20030301

REACTIONS (1)
  - MYOCARDIAL INFARCTION [None]
